FAERS Safety Report 5868903-9 (Version None)
Quarter: 2008Q3

REPORT INFORMATION
  Report Type: 
  Country: None (occurrence: None)
  Receive Date: 20080828
  Receipt Date: 20080806
  Transmission Date: 20090109
  Serious: Yes (Other)
  Sender: FDA-Public Use
  Company Number: 2008012048

PATIENT
  Age: 10 Year
  Sex: Male
  Weight: 29.4838 kg

DRUGS (1)
  1. FRESHBURST LISTERINE (MENTHOL, METHYL SALICYLATE, EUCALYPTOL, THYMOL) [Suspect]
     Indication: DENTAL DISORDER PROPHYLAXIS
     Dosage: 2.5 TEASPOONS 1X PER NIGHT (1 IN 1 D), ORAL
     Route: 048
     Dates: start: 20080215, end: 20080502

REACTIONS (3)
  - BURNING SENSATION [None]
  - DYSGEUSIA [None]
  - ORAL DISCOMFORT [None]
